FAERS Safety Report 9399745 (Version 5)
Quarter: 2014Q1

REPORT INFORMATION
  Report Type: Spontaneous
  Country: None (occurrence: None)
  Receive Date: 20130710
  Receipt Date: 20140306
  Transmission Date: 20141002
  Serious: Yes (Other)
  Sender: FDA-Public Use
  Company Number: ADR-2013-01130

PATIENT
  Age: 17 Year
  Sex: Male

DRUGS (1)
  1. BACLOFEN INTRATHECAL [Suspect]
     Indication: MUSCLE SPASTICITY
     Dosage: 1299.6  MCG/DAY

REACTIONS (4)
  - Withdrawal syndrome [None]
  - Device occlusion [None]
  - Tachyphylaxis [None]
  - Device kink [None]
